FAERS Safety Report 9003598 (Version 1)
Quarter: 2013Q1

REPORT INFORMATION
  Report Type: Spontaneous
  Country: US (occurrence: US)
  Receive Date: 20130108
  Receipt Date: 20130108
  Transmission Date: 20140127
  Serious: Yes (Other)
  Sender: FDA-Public Use
  Company Number: US-PFIZER INC-2013003232

PATIENT
  Age: 54 Year
  Sex: Female
  Weight: 83.9 kg

DRUGS (1)
  1. PREMPRO [Suspect]
     Indication: MENOPAUSAL SYMPTOMS
     Dosage: 0.45 MG, DAILY
     Route: 048
     Dates: start: 2012

REACTIONS (3)
  - Vaginal haemorrhage [Unknown]
  - Back pain [Unknown]
  - Pain in extremity [Unknown]
